FAERS Safety Report 14258364 (Version 2)
Quarter: 2018Q1

REPORT INFORMATION
  Report Type: Spontaneous
  Country: IT (occurrence: IT)
  Receive Date: 20171207
  Receipt Date: 20180307
  Transmission Date: 20180508
  Serious: Yes (Other)
  Sender: FDA-Public Use
  Company Number: IT-CONCORDIA PHARMACEUTICALS INC.-E2B_00008636

PATIENT
  Age: 89 Year
  Sex: Female

DRUGS (12)
  1. DIGOXIN. [Suspect]
     Active Substance: DIGOXIN
     Route: 048
  2. DIGOXIN. [Suspect]
     Active Substance: DIGOXIN
     Route: 042
  3. FUROSEMIDE. [Suspect]
     Active Substance: FUROSEMIDE
     Indication: CARDIAC FAILURE
     Route: 065
  4. DIGOXIN. [Suspect]
     Active Substance: DIGOXIN
     Indication: CARDIAC FAILURE
     Route: 048
  5. DIGOXIN. [Suspect]
     Active Substance: DIGOXIN
     Indication: TACHYARRHYTHMIA
     Route: 042
  6. DIGOXIN. [Suspect]
     Active Substance: DIGOXIN
     Indication: CARDIAC FAILURE
     Route: 042
  7. FUROSEMIDE. [Suspect]
     Active Substance: FUROSEMIDE
     Indication: TACHYARRHYTHMIA
     Route: 065
  8. APIXABAN [Suspect]
     Active Substance: APIXABAN
     Indication: ATRIAL FIBRILLATION
     Dosage: ; IN TOTAL
     Route: 065
  9. FUROSEMIDE. [Suspect]
     Active Substance: FUROSEMIDE
     Indication: CARDIAC FAILURE
     Route: 065
  10. DIGOXIN. [Suspect]
     Active Substance: DIGOXIN
     Indication: CARDIAC FAILURE
     Route: 048
  11. APIXABAN [Suspect]
     Active Substance: APIXABAN
     Indication: CEREBROVASCULAR ACCIDENT PROPHYLAXIS
     Route: 065
  12. AMIODARONE [Suspect]
     Active Substance: AMIODARONE
     Indication: ATRIAL FIBRILLATION
     Route: 065
     Dates: start: 20000101

REACTIONS (8)
  - Cardiac failure [Unknown]
  - Orthopnoea [Unknown]
  - Tachyarrhythmia [Unknown]
  - Dyspnoea [Unknown]
  - Drug interaction [Unknown]
  - Overdose [Unknown]
  - Drug level increased [Unknown]
  - Toxicity to various agents [Unknown]
